FAERS Safety Report 25723834 (Version 1)
Quarter: 2025Q3

REPORT INFORMATION
  Report Type: Report from Study
  Country: US (occurrence: US)
  Receive Date: 20250825
  Receipt Date: 20250825
  Transmission Date: 20251021
  Serious: Yes (Other)
  Sender: ALEXION PHARMACEUTICALS
  Company Number: US-AstraZeneca-CH-00936172A

PATIENT
  Sex: Female

DRUGS (2)
  1. OSIMERTINIB [Suspect]
     Active Substance: OSIMERTINIB
     Indication: Lung neoplasm malignant
     Dosage: 40 MILLIGRAM, QD
  2. ELIQUIS [Concomitant]
     Active Substance: APIXABAN
     Route: 065

REACTIONS (8)
  - Thrombosis [Unknown]
  - Lung disorder [Unknown]
  - Asthenia [Unknown]
  - Nail disorder [Unknown]
  - Metastases to central nervous system [Unknown]
  - Swelling face [Unknown]
  - Inflammation [Unknown]
  - Oedema peripheral [Unknown]
